FAERS Safety Report 21403594 (Version 1)
Quarter: 2022Q4

REPORT INFORMATION
  Report Type: Spontaneous
  Country: DE (occurrence: DE)
  Receive Date: 20221003
  Receipt Date: 20221003
  Transmission Date: 20230112
  Serious: Yes (Hospitalization)
  Sender: FDA-Public Use
  Company Number: DE-EMA-DD-20220921-116353-115205

PATIENT
  Age: 78 Year
  Sex: Female

DRUGS (16)
  1. METHOTREXATE [Suspect]
     Active Substance: METHOTREXATE
     Indication: Rheumatoid arthritis
     Dosage: 10 MILLIGRAM
     Dates: start: 20150330
  2. METHOTREXATE [Suspect]
     Active Substance: METHOTREXATE
     Dosage: 10 MILLIGRAM
     Dates: start: 20150623
  3. METHOTREXATE [Suspect]
     Active Substance: METHOTREXATE
     Dosage: 15 MILLIGRAM
     Dates: start: 20150921
  4. METHOTREXATE [Suspect]
     Active Substance: METHOTREXATE
     Dosage: 15 MILLIGRAM
     Dates: start: 20160225
  5. METHOTREXATE [Suspect]
     Active Substance: METHOTREXATE
     Dosage: 15 MILLIGRAM
     Dates: start: 20160928
  6. METHOTREXATE [Suspect]
     Active Substance: METHOTREXATE
     Dosage: 15 MILLIGRAM
     Dates: start: 20170302
  7. METHOTREXATE [Suspect]
     Active Substance: METHOTREXATE
     Dosage: 10 MILLIGRAM
     Dates: start: 20181008
  8. METHOTREXATE [Suspect]
     Active Substance: METHOTREXATE
     Dosage: 10 MILLIGRAM
     Dates: start: 20171016
  9. METHOTREXATE [Suspect]
     Active Substance: METHOTREXATE
     Dosage: 10 MILLIGRAM
     Dates: start: 20180308
  10. METHOTREXATE [Suspect]
     Active Substance: METHOTREXATE
     Dosage: 5 MILLIGRAM
     Dates: start: 20190208
  11. METHOTREXATE [Suspect]
     Active Substance: METHOTREXATE
     Dosage: 5 MILLIGRAM
     Dates: start: 20190913
  12. METHOTREXATE [Suspect]
     Active Substance: METHOTREXATE
     Dosage: 10 MILLIGRAM
     Dates: start: 20200918
  13. LEFLUNOMIDE [Suspect]
     Active Substance: LEFLUNOMIDE
     Indication: Rheumatoid arthritis
     Dosage: 20 MG
     Dates: start: 20150330
  14. LEFLUNOMIDE [Suspect]
     Active Substance: LEFLUNOMIDE
     Dosage: 20 MG
     Dates: start: 20150623
  15. LEFLUNOMIDE [Suspect]
     Active Substance: LEFLUNOMIDE
     Dosage: UNK
     Dates: start: 20150921
  16. ETANERCEPT [Suspect]
     Active Substance: ETANERCEPT
     Indication: Rheumatoid arthritis
     Dosage: 50 MG
     Dates: start: 201705, end: 201904

REACTIONS (4)
  - Osteoarthritis [Not Recovered/Not Resolved]
  - Post procedural infection [Recovered/Resolved]
  - Knee arthroplasty [Not Recovered/Not Resolved]
  - Cough [Unknown]

NARRATIVE: CASE EVENT DATE: 20191111
